FAERS Safety Report 4997953-X (Version None)
Quarter: 2006Q2

REPORT INFORMATION
  Report Type: 
  Country: None (occurrence: None)
  Receive Date: 20060508
  Receipt Date: 20060426
  Transmission Date: 20061013
  Serious: Yes (Other)
  Sender: FDA-Public Use
  Company Number: 2006057473

PATIENT
  Age: 57 Year
  Sex: Male

DRUGS (4)
  1. CELEBREX [Suspect]
     Indication: ARTHRITIS
     Dosage: 2 IN 1 D
     Dates: start: 20010101
  2. CODEINE [Concomitant]
  3. DARVOCET [Concomitant]
  4. DARVOCET-N 100 [Concomitant]

REACTIONS (3)
  - CEREBROVASCULAR ACCIDENT [None]
  - CONVULSION [None]
  - RENAL FAILURE [None]
